FAERS Safety Report 14699592 (Version 1)
Quarter: 2018Q1

REPORT INFORMATION
  Report Type: Spontaneous
  Country: SK (occurrence: SK)
  Receive Date: 20180330
  Receipt Date: 20180330
  Transmission Date: 20180509
  Serious: Yes (Death, Hospitalization)
  Sender: FDA-Public Use
  Company Number: SK-MYLANLABS-2018M1018794

PATIENT
  Age: 62 Year
  Sex: Male

DRUGS (3)
  1. ABRAXANE [Suspect]
     Active Substance: PACLITAXEL
     Indication: PANCREATIC CARCINOMA
     Dosage: 100 MG/M2, 28D CYCLE
     Route: 041
     Dates: start: 20170301
  2. GEMCITABINE [Suspect]
     Active Substance: GEMCITABINE\GEMCITABINE HYDROCHLORIDE
     Indication: PANCREATIC CARCINOMA
     Dosage: 1000 MG/M2, 28D CYCLE
     Route: 041
     Dates: start: 20160818
  3. ABRAXANE [Suspect]
     Active Substance: PACLITAXEL
     Dosage: 125 MG/M2, 28D CYCLE
     Route: 041
     Dates: start: 20160818

REACTIONS (7)
  - Fatigue [Unknown]
  - Pancreatic carcinoma [Unknown]
  - Melaena [Recovered/Resolved]
  - Death [Fatal]
  - Oral herpes [Recovered/Resolved]
  - Haematemesis [Recovered/Resolved]
  - Anaemia [Recovered/Resolved]

NARRATIVE: CASE EVENT DATE: 20170601
